FAERS Safety Report 12385156 (Version 2)
Quarter: 2016Q3

REPORT INFORMATION
  Report Type: Report from Study
  Country: US (occurrence: US)
  Receive Date: 20160519
  Receipt Date: 20160811
  Transmission Date: 20161109
  Serious: Yes (Life-Threatening, Hospitalization, Other)
  Sender: FDA-Public Use
  Company Number: US-PFIZER INC-2016262113

PATIENT
  Age: 58 Year
  Sex: Female

DRUGS (3)
  1. MORPHINE SULFATE. [Suspect]
     Active Substance: MORPHINE SULFATE
     Indication: PNEUMONIA
     Dosage: UNK
  2. ENBREL [Suspect]
     Active Substance: ETANERCEPT
     Indication: RHEUMATOID ARTHRITIS
     Dosage: 50 MG, 2 TIMES/WK
     Dates: start: 20100222
  3. ENBREL [Suspect]
     Active Substance: ETANERCEPT
     Dosage: UNK, 2X/WEEK
     Dates: start: 201512

REACTIONS (13)
  - Pneumothorax [Unknown]
  - Limb injury [Unknown]
  - Fibromyalgia [Unknown]
  - Amnesia [Unknown]
  - Pneumonia [Unknown]
  - Overdose [Unknown]
  - Fatigue [Unknown]
  - Mobility decreased [Unknown]
  - Vaginal prolapse [Unknown]
  - Fall [Unknown]
  - Intervertebral disc protrusion [Unknown]
  - Asthenia [Unknown]
  - Intentional product misuse [Unknown]

NARRATIVE: CASE EVENT DATE: 2015
